FAERS Safety Report 11575162 (Version 1)
Quarter: 2015Q3

REPORT INFORMATION
  Report Type: Spontaneous
  Country: US (occurrence: US)
  Receive Date: 20150916
  Receipt Date: 20150916
  Transmission Date: 20151125
  Serious: No
  Sender: FDA-Public Use
  Company Number: US-ELI_LILLY_AND_COMPANY-US200911005088

PATIENT
  Age: 77 Year
  Sex: Female

DRUGS (1)
  1. FORTEO [Suspect]
     Active Substance: TERIPARATIDE
     Dates: start: 20091029

REACTIONS (12)
  - Sneezing [Not Recovered/Not Resolved]
  - Gastric disorder [Unknown]
  - Constipation [Recovering/Resolving]
  - Haemorrhage [Recovered/Resolved]
  - Cough [Not Recovered/Not Resolved]
  - Feeling of body temperature change [Unknown]
  - Headache [Unknown]
  - Dizziness [Unknown]
  - Cystitis [Recovered/Resolved]
  - Abdominal distension [Not Recovered/Not Resolved]
  - Abdominal pain upper [Not Recovered/Not Resolved]
  - Feeling abnormal [Not Recovered/Not Resolved]

NARRATIVE: CASE EVENT DATE: 2009
